FAERS Safety Report 6607091-8 (Version None)
Quarter: 2010Q1

REPORT INFORMATION
  Report Type: 
  Country: None (occurrence: None)
  Receive Date: 20100219
  Receipt Date: 20100208
  Transmission Date: 20100710
  Serious: No
  Sender: FDA-Public Use
  Company Number: 006525

PATIENT
  Sex: Female

DRUGS (1)
  1. KEPPRA [Suspect]
     Dosage: 1500 MG BID, ORAL
     Route: 048
     Dates: start: 20080101

REACTIONS (1)
  - INCORRECT DOSE ADMINISTERED [None]
